FAERS Safety Report 16089015 (Version 1)
Quarter: 2019Q2

REPORT INFORMATION
  Report Type: Spontaneous
  Country: US (occurrence: US)
  Receive Date: 20190318
  Receipt Date: 20190318
  Transmission Date: 20190711
  Serious: No
  Sender: FDA-Public Use
  Company Number: None

PATIENT
  Sex: Female

DRUGS (1)
  1. TIVICAY [Suspect]
     Active Substance: DOLUTEGRAVIR SODIUM
     Indication: HIV INFECTION
     Route: 048
     Dates: start: 20160222

REACTIONS (1)
  - Dysphonia [None]
